FAERS Safety Report 7190220-8 (Version None)
Quarter: 2010Q4

REPORT INFORMATION
  Report Type: 
  Country: None (occurrence: None)
  Receive Date: 20101221
  Receipt Date: 20101221
  Transmission Date: 20110411
  Serious: No
  Sender: FDA-Public Use
  Company Number: None

PATIENT
  Sex: Female

DRUGS (2)
  1. OXCARBAZEPINE [Suspect]
     Indication: CONVULSION
     Dates: start: 20101119, end: 20101122
  2. ATIVAN [Concomitant]

REACTIONS (2)
  - CONVULSION [None]
  - DRUG LEVEL DECREASED [None]
